FAERS Safety Report 10388813 (Version 1)
Quarter: 2014Q1

REPORT INFORMATION
  Report Type: Spontaneous
  Country: US (occurrence: None)
  Receive Date: 20140306
  Receipt Date: 20140306
  Transmission Date: 20141002
  Serious: Yes (Other)
  Sender: FDA-Public Use
  Company Number: 163-21880-13104274

PATIENT
  Age: 79 Year
  Sex: Male

DRUGS (5)
  1. REVLIMID (LENALIDOMIDE)  (CAPSULES) [Suspect]
     Indication: PLASMA CELL MYELOMA
     Dosage: 25 MG, 21 IN 21 D, PO
     Route: 048
     Dates: start: 20130508
  2. TIZANIDINE HCL [Concomitant]
  3. PERCOCET (OXYCOCET) [Concomitant]
  4. NORCO (VICODIN) [Concomitant]
  5. SINGULAIR (MONTELUKAST SODIUM) TABLET [Concomitant]

REACTIONS (3)
  - Fluid retention [None]
  - Dyspnoea [None]
  - Local swelling [None]
